FAERS Safety Report 8378228 (Version 3)
Quarter: 2013Q1

REPORT INFORMATION
  Report Type: Spontaneous
  Country: US (occurrence: US)
  Receive Date: 20120131
  Receipt Date: 20130306
  Transmission Date: 20140127
  Serious: Yes (Death, Hospitalization)
  Sender: FDA-Public Use
  Company Number: US-JNJFOC-20120109926

PATIENT
  Sex: Female
  Weight: 61.59 kg

DRUGS (2)
  1. TYLENOL [Suspect]
     Route: 065
  2. TYLENOL [Suspect]
     Indication: DYSMENORRHOEA
     Route: 065
     Dates: start: 201009

REACTIONS (33)
  - Acute hepatic failure [Fatal]
  - Thrombocytopenia [Not Recovered/Not Resolved]
  - Anaemia [Not Recovered/Not Resolved]
  - Renal failure acute [Not Recovered/Not Resolved]
  - Respiratory failure [Fatal]
  - Brain oedema [Not Recovered/Not Resolved]
  - Overdose [Not Recovered/Not Resolved]
  - Shock [Fatal]
  - Status epilepticus [Unknown]
  - Gastrointestinal haemorrhage [Not Recovered/Not Resolved]
  - Fall [None]
  - Contusion [None]
  - Hepatomegaly [None]
  - Splenomegaly [None]
  - Hallucination, visual [None]
  - Sinus tachycardia [None]
  - Head injury [None]
  - Delirium tremens [None]
  - Ileitis [None]
  - Hypophagia [None]
  - Conjunctival haemorrhage [None]
  - Periorbital haemorrhage [None]
  - Urine copper increased [None]
  - Hepato-lenticular degeneration [None]
  - Respiratory distress [None]
  - Mental status changes [None]
  - Unresponsive to stimuli [None]
  - Haemodialysis [None]
  - Generalised oedema [None]
  - Multi-organ failure [None]
  - Cardiac arrest [None]
  - Blood pH decreased [None]
  - International normalised ratio increased [None]
